FAERS Safety Report 8231096-7 (Version None)
Quarter: 2012Q1

REPORT INFORMATION
  Report Type: 
  Country: None (occurrence: None)
  Receive Date: 20120322
  Receipt Date: 20120322
  Transmission Date: 20120608
  Serious: Yes (Other)
  Sender: FDA-Public Use
  Company Number: None

PATIENT
  Age: 40 Year
  Sex: Female
  Weight: 91.172 kg

DRUGS (2)
  1. LEVOFLOXACIN [Suspect]
     Indication: BRONCHITIS
     Dosage: 1 TAB
     Route: 048
     Dates: start: 20120106, end: 20120110
  2. LEVOFLOXACIN [Suspect]

REACTIONS (4)
  - HERPES ZOSTER [None]
  - CHEST PAIN [None]
  - MITRAL VALVE PROLAPSE [None]
  - HYPERSENSITIVITY [None]
